FAERS Safety Report 24219208 (Version 6)
Quarter: 2025Q3

REPORT INFORMATION
  Report Type: Spontaneous
  Country: US (occurrence: US)
  Receive Date: 20240816
  Receipt Date: 20250828
  Transmission Date: 20251021
  Serious: No
  Sender: SANOFI AVENTIS
  Company Number: US-SA-SAC20240813000256

PATIENT
  Age: 68 Year
  Sex: Female
  Weight: 86.168 kg

DRUGS (16)
  1. DUPIXENT [Suspect]
     Active Substance: DUPILUMAB
     Indication: Dermatitis atopic
     Dosage: 300 MG, QOW
     Route: 058
     Dates: start: 2023
  2. DUPIXENT [Suspect]
     Active Substance: DUPILUMAB
     Indication: Asthma
     Dosage: 300 MG, Q10D
     Route: 058
  3. PREDNISONE [Concomitant]
     Active Substance: PREDNISONE
  4. EZETIMIBE [Concomitant]
     Active Substance: EZETIMIBE
  5. SIMVASTATIN [Concomitant]
     Active Substance: SIMVASTATIN
  6. FAMOTIDINE [Concomitant]
     Active Substance: FAMOTIDINE
  7. SERTRALINE [Concomitant]
     Active Substance: SERTRALINE HYDROCHLORIDE
  8. TRIAMCINOLONE ACETONIDE [Concomitant]
     Active Substance: TRIAMCINOLONE ACETONIDE
  9. PULMICORT TURBUHALER [Concomitant]
     Active Substance: BUDESONIDE
  10. LORAZEPAM [Concomitant]
     Active Substance: LORAZEPAM
  11. FLUTICASONE PROPIONATE [Concomitant]
     Active Substance: FLUTICASONE PROPIONATE
  12. BUDESONIDE\FORMOTEROL [Concomitant]
     Active Substance: BUDESONIDE\FORMOTEROL
  13. CALCIUM [Concomitant]
     Active Substance: CALCIUM
  14. CETIRIZINE [Concomitant]
     Active Substance: CETIRIZINE HYDROCHLORIDE
  15. YUVAFEM [Concomitant]
     Active Substance: ESTRADIOL HEMIHYDRATE
  16. ALBUTEROL\IPRATROPIUM [Concomitant]
     Active Substance: ALBUTEROL\IPRATROPIUM

REACTIONS (11)
  - Respiratory tract infection [Unknown]
  - Sinus disorder [Unknown]
  - Dust allergy [Unknown]
  - Dyspnoea [Unknown]
  - Illness [Unknown]
  - Skin disorder [Not Recovered/Not Resolved]
  - Sneezing [Unknown]
  - Herpes zoster [Unknown]
  - Rash [Unknown]
  - Hypersensitivity [Not Recovered/Not Resolved]
  - Inappropriate schedule of product administration [Unknown]

NARRATIVE: CASE EVENT DATE: 20240801
